FAERS Safety Report 8261035-4 (Version None)
Quarter: 2012Q2

REPORT INFORMATION
  Report Type: 
  Country: None (occurrence: None)
  Receive Date: 20120405
  Receipt Date: 20120326
  Transmission Date: 20120825
  Serious: Yes (Other)
  Sender: FDA-Public Use
  Company Number: PHHY2012MX027261

PATIENT
  Sex: Female

DRUGS (10)
  1. RASILEZ [Suspect]
     Dosage: 150 MG, UNK
     Dates: start: 20070101
  2. MICARDIS [Concomitant]
     Dosage: UNK UKN, UNK
     Dates: start: 20110101
  3. CLOPIDOGREL [Concomitant]
     Indication: ANTICOAGULANT THERAPY
     Dosage: 0.5 DF, DAILY
  4. DIOVAN [Suspect]
     Indication: HYPERTENSION
     Dosage: 80 MG, TWO TABLETS BY DAY
     Dates: start: 20050101
  5. ASPIRINA JUNIOR [Concomitant]
     Indication: ANGIOPATHY
     Dosage: UNK UKN, UNK
     Dates: start: 20040101
  6. FUROSEMIDE [Concomitant]
     Indication: FLUID RETENTION
     Dosage: 2 DF, BY DAY
     Dates: start: 20050101
  7. OMEPRAZOLE [Concomitant]
     Indication: GASTROINTESTINAL DISORDER THERAPY
     Dosage: 2 DF, BY DAY
  8. AMLODIPINE [Concomitant]
     Indication: HYPERTENSION
     Dosage: 1.5 DF, DAILY
  9. PHENYTOIN [Concomitant]
     Indication: CONVULSION
     Dosage: 1.5 DF, DAILY
     Dates: start: 20050101
  10. SINOGAN [Concomitant]
     Indication: SLEEP DISORDER
     Dosage: 0.25 DF, DAILY

REACTIONS (4)
  - MELAENA [None]
  - RECTAL HAEMORRHAGE [None]
  - COLON CANCER [None]
  - DEPRESSION [None]
